FAERS Safety Report 16894063 (Version 1)
Quarter: 2019Q4

REPORT INFORMATION
  Report Type: Spontaneous
  Country: US (occurrence: US)
  Receive Date: 20191008
  Receipt Date: 20191008
  Transmission Date: 20200122
  Serious: Yes (Hospitalization, Other)
  Sender: FDA-Public Use
  Company Number: US-SA-2019SA277552

PATIENT
  Age: 34 Year
  Sex: Female

DRUGS (1)
  1. SEVELAMER HYDROCHLORIDE. [Suspect]
     Active Substance: SEVELAMER HYDROCHLORIDE
     Indication: HYPERPHOSPHATAEMIA
     Dosage: TID (THREE TIMES DAILY USE)

REACTIONS (6)
  - Abdominal pain [Recovered/Resolved]
  - Crystal deposit intestine [Recovered/Resolved]
  - Complicated appendicitis [Recovered/Resolved]
  - Peritonitis [Recovered/Resolved]
  - Abdominal abscess [Recovered/Resolved]
  - Appendicitis perforated [Recovered/Resolved]
